FAERS Safety Report 21017442 (Version 4)
Quarter: 2022Q3

REPORT INFORMATION
  Report Type: Report from Study
  Country: US (occurrence: US)
  Receive Date: 20220628
  Receipt Date: 20220722
  Transmission Date: 20221027
  Serious: Yes (Life-Threatening)
  Sender: FDA-Public Use
  Company Number: US-NOVARTISPH-NVSC2022US144951

PATIENT
  Age: 66 Year
  Sex: Male
  Weight: 112.22 kg

DRUGS (5)
  1. DABRAFENIB [Suspect]
     Active Substance: DABRAFENIB
     Indication: Malignant melanoma
     Dosage: 150 MG, BID, CYCLE 1 DAY 1
     Route: 048
     Dates: start: 20220607, end: 20220607
  2. TRAMETINIB [Suspect]
     Active Substance: TRAMETINIB
     Indication: Malignant melanoma
     Dosage: 2 MG, QD, C1D1
     Route: 048
     Dates: start: 20220607, end: 20220607
  3. IPILIMUMAB [Suspect]
     Active Substance: IPILIMUMAB
     Indication: Malignant melanoma
     Dosage: 1 MG/KG, DAY 1 AND DAY 22 OF CYCLES 1 AND 2
     Route: 042
     Dates: start: 20211006, end: 20211208
  4. NIVOLUMAB [Suspect]
     Active Substance: NIVOLUMAB
     Indication: Malignant melanoma
     Dosage: 3 MG/KG, DAY 1 AND DAY 22 OF CYCLES 1 AND 2
     Route: 042
     Dates: start: 20211006
  5. NIVOLUMAB [Suspect]
     Active Substance: NIVOLUMAB
     Dosage: 3 MG/KG, DAY 1, 15, AND 29
     Route: 042
     Dates: start: 20211229, end: 20220504

REACTIONS (1)
  - Hypersensitivity [Recovered/Resolved]

NARRATIVE: CASE EVENT DATE: 20220607
